FAERS Safety Report 18251264 (Version 2)
Quarter: 2020Q4

REPORT INFORMATION
  Report Type: Spontaneous
  Country: US (occurrence: US)
  Receive Date: 20200910
  Receipt Date: 20201022
  Transmission Date: 20210113
  Serious: No
  Sender: FDA-Public Use
  Company Number: US-ASTRAZENECA-2020SF08160

PATIENT
  Sex: Male
  Weight: 95.3 kg

DRUGS (3)
  1. FASENRA [Suspect]
     Active Substance: BENRALIZUMAB
     Indication: ASTHMA
     Dosage: 30 MG ONCE EVERY 28 DAYS THEN EVERY 2 MONTHS
     Route: 058
     Dates: start: 20200720
  2. CETIRIZINE [Concomitant]
     Active Substance: CETIRIZINE HYDROCHLORIDE
     Route: 048
     Dates: start: 2020
  3. MONTELUKAST [Concomitant]
     Active Substance: MONTELUKAST SODIUM
     Route: 048

REACTIONS (5)
  - Therapeutic response shortened [Not Recovered/Not Resolved]
  - Device leakage [Unknown]
  - Asthma [Not Recovered/Not Resolved]
  - Product label issue [Unknown]
  - Drug dose omission by device [Unknown]
